FAERS Safety Report 7339345-4 (Version None)
Quarter: 2011Q1

REPORT INFORMATION
  Report Type: 
  Country: None (occurrence: None)
  Receive Date: 20110308
  Receipt Date: 20110302
  Transmission Date: 20110831
  Serious: Yes (Other)
  Sender: FDA-Public Use
  Company Number: US-PFIZER INC-2011013498

PATIENT
  Sex: Male
  Weight: 83.9 kg

DRUGS (6)
  1. LYRICA [Suspect]
     Indication: NECK INJURY
  2. LYRICA [Suspect]
     Indication: PAIN
  3. LYRICA [Suspect]
     Indication: FIBROMYALGIA
     Dosage: 50 MG, UNK
     Route: 048
     Dates: start: 20101001
  4. OXYCONTIN [Concomitant]
     Dosage: 80 MG, UNK
     Dates: start: 20100309
  5. ZOLOFT [Concomitant]
     Dosage: 100 MG, UNK
     Dates: start: 20070423
  6. XANAX [Concomitant]
     Dosage: 0.25 MG, UNK
     Dates: start: 20100924

REACTIONS (7)
  - WEIGHT INCREASED [None]
  - OROPHARYNGEAL BLISTERING [None]
  - PAIN [None]
  - DRY MOUTH [None]
  - VISION BLURRED [None]
  - TINNITUS [None]
  - INSOMNIA [None]
